FAERS Safety Report 10340264 (Version 1)
Quarter: 2014Q3

REPORT INFORMATION
  Report Type: Spontaneous
  Country: US (occurrence: US)
  Receive Date: 20140724
  Receipt Date: 20140724
  Transmission Date: 20150326
  Serious: Yes (Other)
  Sender: FDA-Public Use
  Company Number: US-B.I. PHARMACEUTICALS,INC./RIDGEFIELD-2014-BI-33578BP

PATIENT
  Sex: Female
  Weight: 90 kg

DRUGS (6)
  1. LIPITOR [Concomitant]
     Active Substance: ATORVASTATIN CALCIUM
     Indication: BLOOD CHOLESTEROL INCREASED
     Dosage: 10 MG
     Route: 048
     Dates: start: 2004
  2. LOSARTAN [Concomitant]
     Active Substance: LOSARTAN
     Indication: CARDIOMYOPATHY
     Dosage: 12.5 MG
     Route: 048
     Dates: start: 201406
  3. SPIRIVA [Suspect]
     Active Substance: TIOTROPIUM BROMIDE MONOHYDRATE
     Indication: EMPHYSEMA
     Dosage: 18 MCG
     Route: 055
     Dates: start: 2010
  4. PROTONIX [Concomitant]
     Active Substance: PANTOPRAZOLE SODIUM
     Indication: GASTROOESOPHAGEAL REFLUX DISEASE
     Dosage: 40 MG
     Route: 048
  5. IPRATROPIUM BROMIDE/ALBUTEROL SULFATE [Concomitant]
     Active Substance: ALBUTEROL SULFATE\IPRATROPIUM BROMIDE
     Indication: EMPHYSEMA
     Dosage: 9 ML
     Route: 055
     Dates: start: 2008
  6. DETROL LA [Concomitant]
     Active Substance: TOLTERODINE TARTRATE
     Indication: URINARY INCONTINENCE
     Dosage: 4 MG
     Route: 048
     Dates: start: 2012

REACTIONS (1)
  - Oesophageal carcinoma [Not Recovered/Not Resolved]

NARRATIVE: CASE EVENT DATE: 2012
